FAERS Safety Report 12934748 (Version 1)
Quarter: 2016Q4

REPORT INFORMATION
  Report Type: Spontaneous
  Country: US (occurrence: US)
  Receive Date: 20161112
  Receipt Date: 20161112
  Transmission Date: 20170207
  Serious: No
  Sender: FDA-Public Use
  Company Number: US-ZYDUS-009162

PATIENT
  Age: 76 Year
  Sex: Female

DRUGS (2)
  1. WARFARIN [Concomitant]
     Active Substance: WARFARIN
     Indication: ATRIAL FIBRILLATION
  2. AMIODARONE [Suspect]
     Active Substance: AMIODARONE
     Indication: ATRIAL FIBRILLATION
     Dosage: 200 MG DAILY
     Route: 048
     Dates: start: 201506

REACTIONS (2)
  - Alopecia [Not Recovered/Not Resolved]
  - Myopia [Not Recovered/Not Resolved]

NARRATIVE: CASE EVENT DATE: 201508
